FAERS Safety Report 10013003 (Version 1)
Quarter: 2014Q1

REPORT INFORMATION
  Report Type: Spontaneous
  Country: US (occurrence: US)
  Receive Date: 20140314
  Receipt Date: 20140314
  Transmission Date: 20141002
  Serious: No
  Sender: FDA-Public Use
  Company Number: US-PFIZER INC-2014071749

PATIENT
  Sex: Male

DRUGS (2)
  1. ALTACE [Suspect]
     Indication: HYPERTENSION
     Dosage: UNK
  2. RAMIPRIL [Suspect]
     Indication: HYPERTENSION
     Dosage: UNK

REACTIONS (2)
  - Drug ineffective [Unknown]
  - Feeling abnormal [Unknown]
